FAERS Safety Report 8218689-8 (Version None)
Quarter: 2012Q1

REPORT INFORMATION
  Report Type: 
  Country: None (occurrence: None)
  Receive Date: 20120319
  Receipt Date: 20120306
  Transmission Date: 20120608
  Serious: Yes (Other)
  Sender: FDA-Public Use
  Company Number: PHEH2011US011007

PATIENT
  Sex: Female
  Weight: 70.295 kg

DRUGS (8)
  1. AZITHROMYCIN [Concomitant]
     Indication: INFECTION
  2. EXJADE [Suspect]
     Indication: IRON OVERLOAD
     Dosage: 1500 MG, QD
     Route: 048
     Dates: start: 20111106, end: 20111205
  3. ALPRAZOLAM [Concomitant]
     Indication: ANXIETY
     Dosage: 0.5 MG, PRN
     Route: 048
     Dates: start: 20111006
  4. ADVAIR DISKUS 100/50 [Concomitant]
     Indication: ASTHMA
  5. EXJADE [Suspect]
     Dosage: 1250 MG, QD
  6. SINGULAIR [Concomitant]
  7. VENTOLIN [Concomitant]
     Indication: ASTHMA
  8. EXJADE [Suspect]
     Dosage: 500 MG, DAILY
     Dates: start: 20120118

REACTIONS (8)
  - ASTHMA [None]
  - ORAL INFECTION [None]
  - HEADACHE [None]
  - RASH PRURITIC [None]
  - HYPERSENSITIVITY [None]
  - RASH [None]
  - CHILLS [None]
  - PYREXIA [None]
